FAERS Safety Report 4596148-1 (Version None)
Quarter: 2005Q1

REPORT INFORMATION
  Report Type: 
  Country: None (occurrence: None)
  Receive Date: 20050302
  Receipt Date: 20050221
  Transmission Date: 20050727
  Serious: Yes (Other)
  Sender: FDA-Public Use
  Company Number: GB-ROCHE-396106

PATIENT
  Age: 79 Year
  Sex: Female
  Weight: 52.3 kg

DRUGS (10)
  1. TAMIFLU [Suspect]
     Indication: INFLUENZA
     Route: 048
     Dates: start: 20050126, end: 20050131
  2. PARACETAMOL [Concomitant]
     Dosage: 2 X 500MG FOUR TIMES PER DAY AS NEEDED.
     Route: 065
  3. PROMAZINE HCL [Concomitant]
     Route: 065
  4. TRAZODONE HCL [Concomitant]
     Dosage: 50 MG IN THE MORNING AND 150MG AT NIGHT.
     Route: 065
  5. FLIXONASE [Concomitant]
     Dosage: 2 EACH NOSTRIL, ONCE PER DAY.
     Route: 055
  6. ASPIRIN [Concomitant]
     Route: 065
  7. MADOPAR [Concomitant]
     Route: 065
  8. FERROUS SULFATE TAB [Concomitant]
     Route: 065
  9. FOLIC ACID [Concomitant]
     Route: 065
  10. FUROSEMIDE [Concomitant]
     Dosage: IN THE MORNING.
     Route: 065

REACTIONS (2)
  - PROTEINURIA [None]
  - URINE ODOUR ABNORMAL [None]
